FAERS Safety Report 4534212-3 (Version None)
Quarter: 2004Q4

REPORT INFORMATION
  Report Type: 
  Country: None (occurrence: None)
  Receive Date: 20041214
  Receipt Date: 20040819
  Transmission Date: 20050328
  Serious: No
  Sender: FDA-Public Use
  Company Number: USA040875792

PATIENT
  Age: 68 Year
  Sex: Male
  Weight: 73 kg

DRUGS (9)
  1. CIALIS [Suspect]
     Indication: ERECTILE DYSFUNCTION
     Dosage: 20 MG
     Dates: start: 20040814
  2. HYDROCHLOROTHIAZIDE [Concomitant]
  3. FLAX SEED OIL [Concomitant]
  4. CORAL CALCIUM DAILY [Concomitant]
  5. ASPIRIN [Concomitant]
  6. CAYENNE [Concomitant]
  7. Q-GEL PLUS [Concomitant]
  8. OMEGA [Concomitant]
  9. SAW PALMETTO [Concomitant]

REACTIONS (1)
  - THERAPEUTIC RESPONSE DECREASED [None]
